FAERS Safety Report 11158736 (Version 1)
Quarter: 2015Q2

REPORT INFORMATION
  Report Type: Spontaneous
  Country: US (occurrence: None)
  Receive Date: 20150514
  Receipt Date: 20150514
  Transmission Date: 20150821
  Serious: Yes (Death)
  Sender: FDA-Public Use
  Company Number: 2015010043

PATIENT
  Age: 46 Year
  Sex: Female

DRUGS (4)
  1. AMITRIPTYLINE (AMITRIPTYLINE) [Suspect]
     Active Substance: AMITRIPTYLINE
  2. ZOLPIDEM [Suspect]
     Active Substance: ZOLPIDEM\ZOLPIDEM TARTRATE
  3. DESVENLAFAXINE. [Suspect]
     Active Substance: DESVENLAFAXINE
  4. TOPIRAMATE (TOPIRAMATE) [Suspect]
     Active Substance: TOPIRAMATE

REACTIONS (1)
  - Completed suicide [None]

NARRATIVE: CASE EVENT DATE: 2013
